FAERS Safety Report 9412667 (Version 2)
Quarter: 2013Q3

REPORT INFORMATION
  Report Type: Spontaneous
  Country: US (occurrence: US)
  Receive Date: 20130626
  Receipt Date: 20130820
  Transmission Date: 20140515
  Serious: Yes (Life-Threatening, Other)
  Sender: FDA-Public Use
  Company Number: 54973 AE # 1404

PATIENT
  Age: 22 Year
  Sex: Male

DRUGS (1)
  1. HYLAND^S RESTFUL LEGS TABLETS [Suspect]
     Indication: RESTLESS LEGS SYNDROME
     Dosage: 2 TABLETS ONCE

REACTIONS (9)
  - Heart rate increased [None]
  - Blood pressure increased [None]
  - Heart rate increased [None]
  - Pallor [None]
  - Nausea [None]
  - Vomiting [None]
  - Poor quality sleep [None]
  - Psychomotor hyperactivity [None]
  - Feeling abnormal [None]
